FAERS Safety Report 19194870 (Version 2)
Quarter: 2021Q2

REPORT INFORMATION
  Report Type: Spontaneous
  Country: US (occurrence: US)
  Receive Date: 20210429
  Receipt Date: 20210429
  Transmission Date: 20210717
  Serious: Yes (Other)
  Sender: FDA-Public Use
  Company Number: US-PFIZER INC-2021412637

PATIENT
  Age: 31 Year
  Sex: Female

DRUGS (4)
  1. DIHYDROERGOTAMINE [Suspect]
     Active Substance: DIHYDROERGOTAMINE
     Dosage: 0.5 MG, 2X/DAY (ADDITIONAL DOSE OF HDHE)
     Route: 058
  2. DIHYDROERGOTAMINE [Suspect]
     Active Substance: DIHYDROERGOTAMINE
     Indication: THROMBOSIS PROPHYLAXIS
     Dosage: 0.5 MG, 2X/DAY
     Route: 058
  3. HEPARIN SODIUM. [Suspect]
     Active Substance: HEPARIN SODIUM
     Dosage: 5000 IU, 2X/DAY (ADDITIONAL DOSE OF HDHE)
     Route: 058
  4. HEPARIN SODIUM. [Suspect]
     Active Substance: HEPARIN SODIUM
     Indication: THROMBOSIS PROPHYLAXIS
     Dosage: 5000 IU, 2X/DAY
     Route: 058

REACTIONS (2)
  - Accidental exposure to product [Unknown]
  - Vasospasm [Unknown]
